FAERS Safety Report 13388149 (Version 1)
Quarter: 2017Q1

REPORT INFORMATION
  Report Type: Spontaneous
  Country: US (occurrence: US)
  Receive Date: 20170330
  Receipt Date: 20170330
  Transmission Date: 20170429
  Serious: Yes (Death)
  Sender: FDA-Public Use
  Company Number: US-LUNDBECK-DKLU2028628

PATIENT
  Age: 67 Year
  Sex: Male

DRUGS (3)
  1. NORTHERA [Suspect]
     Active Substance: DROXIDOPA
     Indication: ORTHOSTATIC HYPOTENSION
     Dosage: TITRATION COMPLETE
     Route: 048
     Dates: start: 20170213
  2. NORTHERA [Suspect]
     Active Substance: DROXIDOPA
     Indication: HYPOTENSION
     Dosage: SCHEDULE C
     Route: 065
     Dates: start: 20170216
  3. NORTHERA [Suspect]
     Active Substance: DROXIDOPA
     Indication: DIZZINESS
     Route: 065
     Dates: start: 201703

REACTIONS (3)
  - Fatigue [Unknown]
  - Confusional state [Unknown]
  - Death [Fatal]

NARRATIVE: CASE EVENT DATE: 20170324
